FAERS Safety Report 14631631 (Version 1)
Quarter: 2018Q1

REPORT INFORMATION
  Report Type: Spontaneous
  Country: US (occurrence: US)
  Receive Date: 20180313
  Receipt Date: 20180313
  Transmission Date: 20180509
  Serious: No
  Sender: FDA-Public Use
  Company Number: US-MISSION PHARMACAL COMPANY-2043626

PATIENT
  Age: 33 Year
  Sex: Female

DRUGS (3)
  1. THIOLA [Concomitant]
     Active Substance: TIOPRONIN
     Route: 065
     Dates: start: 20171101
  2. SODIUM BICARBONATE. [Concomitant]
     Active Substance: SODIUM BICARBONATE
     Route: 065
  3. POTASSIUM CITRATE. [Suspect]
     Active Substance: POTASSIUM CITRATE
     Indication: CYSTINURIA
     Route: 065

REACTIONS (3)
  - Pain [Unknown]
  - Drug ineffective [Unknown]
  - Malaise [Unknown]
